FAERS Safety Report 5049315-7 (Version None)
Quarter: 2006Q2

REPORT INFORMATION
  Report Type: 
  Country: None (occurrence: None)
  Receive Date: 20060613
  Receipt Date: 20060503
  Transmission Date: 20061013
  Serious: No
  Sender: FDA-Public Use
  Company Number: 2006-00611

PATIENT
  Age: 85 Year
  Sex: Male
  Weight: 80.1 kg

DRUGS (16)
  1. VELCADE [Suspect]
     Indication: MULTIPLE MYELOMA
     Dosage: 1.25 MG/M2, IV BOLUS
     Route: 040
     Dates: start: 20060313
  2. FOSINOPRIL SODIUM [Concomitant]
  3. ESCITALOPRAM (ESCITALOPRAM) [Concomitant]
  4. PROCRIT [Concomitant]
  5. PREDNISONE [Concomitant]
  6. LORTAB [Concomitant]
  7. DECADRON [Concomitant]
  8. COUMADIN [Concomitant]
  9. FELODIPINE [Concomitant]
  10. SENOKOT [Concomitant]
  11. CYANOCOBALAMIN [Concomitant]
  12. ZOCOR [Concomitant]
  13. ALLOPURINOL [Concomitant]
  14. HYDROCHLOROTHIAZIDE [Concomitant]
  15. ANZEMET [Concomitant]
  16. FERRLECIT [Concomitant]

REACTIONS (1)
  - SYNCOPE [None]
